FAERS Safety Report 5314699-9 (Version None)
Quarter: 2007Q2

REPORT INFORMATION
  Report Type: 
  Country: None (occurrence: None)
  Receive Date: 20070427
  Receipt Date: 20070411
  Transmission Date: 20071010
  Serious: Yes (Hospitalization, Other)
  Sender: FDA-Public Use
  Company Number: DSA_29800_2007

PATIENT

DRUGS (2)
  1. RENIVACE (RENIVACE) (BIOVAIL) [Suspect]
     Indication: HYPERTENSION
     Dosage: ORAL
     Route: 048
  2. BLOPRESS [Concomitant]

REACTIONS (3)
  - DRUG ERUPTION [None]
  - LYMPHOCYTE STIMULATION TEST POSITIVE [None]
  - PUSTULAR PSORIASIS [None]
